FAERS Safety Report 13180104 (Version 2)
Quarter: 2017Q1

REPORT INFORMATION
  Report Type: Spontaneous
  Country: PL (occurrence: PL)
  Receive Date: 20170202
  Receipt Date: 20170210
  Transmission Date: 20170428
  Serious: Yes (Hospitalization, Other)
  Sender: FDA-Public Use
  Company Number: PL-TAKEDA-2017MPI000827

PATIENT
  Age: 76 Year
  Sex: Female

DRUGS (9)
  1. MELPHALAN                          /00006402/ [Suspect]
     Active Substance: MELPHALAN HYDROCHLORIDE
     Dosage: UNK
     Route: 065
     Dates: start: 2013
  2. VELCADE [Suspect]
     Active Substance: BORTEZOMIB
     Dosage: UNK
     Route: 065
     Dates: start: 201309
  3. PREDNISONE. [Suspect]
     Active Substance: PREDNISONE
     Dosage: UNK
     Route: 065
     Dates: start: 201309
  4. MELPHALAN /00006402/ [Suspect]
     Active Substance: MELPHALAN HYDROCHLORIDE
     Indication: PLASMA CELL MYELOMA
     Dosage: UNK
     Route: 065
     Dates: start: 201309
  5. MELPHALAN                          /00006402/ [Suspect]
     Active Substance: MELPHALAN HYDROCHLORIDE
     Dosage: UNK
     Route: 065
     Dates: start: 201311
  6. PREDNISONE. [Suspect]
     Active Substance: PREDNISONE
     Indication: PLASMA CELL MYELOMA
     Dosage: UNK
     Route: 065
     Dates: start: 2013
  7. PREDNISONE. [Suspect]
     Active Substance: PREDNISONE
     Dosage: UNK
     Route: 065
     Dates: start: 201311
  8. VELCADE [Suspect]
     Active Substance: BORTEZOMIB
     Dosage: UNK
     Route: 065
     Dates: start: 201311
  9. VELCADE [Suspect]
     Active Substance: BORTEZOMIB
     Indication: PLASMA CELL MYELOMA
     Dosage: UNK
     Route: 065
     Dates: start: 2013

REACTIONS (8)
  - Drug ineffective [Unknown]
  - Pyrexia [Unknown]
  - Deep vein thrombosis [Unknown]
  - Seizure [Unknown]
  - Thrombocytopenia [Unknown]
  - Pancytopenia [Unknown]
  - Urinary tract infection bacterial [Unknown]
  - Diarrhoea [Unknown]

NARRATIVE: CASE EVENT DATE: 2013
